FAERS Safety Report 22053706 (Version 1)
Quarter: 2023Q1

REPORT INFORMATION
  Report Type: Spontaneous
  Country: US (occurrence: US)
  Receive Date: 20230302
  Receipt Date: 20230302
  Transmission Date: 20230418
  Serious: Yes (Other)
  Sender: FDA-Public Use
  Company Number: US-ELI_LILLY_AND_COMPANY-US202302010748

PATIENT

DRUGS (1)
  1. ZYPREXA [Suspect]
     Active Substance: OLANZAPINE
     Indication: Anxiety
     Dosage: UNK, UNKNOWN
     Route: 065
     Dates: start: 2001

REACTIONS (3)
  - Suicidal ideation [Unknown]
  - Social anxiety disorder [Unknown]
  - Panic reaction [Unknown]
